FAERS Safety Report 13243288 (Version 1)
Quarter: 2017Q1

REPORT INFORMATION
  Report Type: Spontaneous
  Country: US (occurrence: US)
  Receive Date: 20170217
  Receipt Date: 20170217
  Transmission Date: 20170428
  Serious: No
  Sender: FDA-Public Use
  Company Number: US-WEST-WARD PHARMACEUTICALS CORP.-US-H14001-16-01384

PATIENT
  Age: 44 Year
  Sex: Female

DRUGS (1)
  1. FLUTICASONE PROPIONATE. [Suspect]
     Active Substance: FLUTICASONE PROPIONATE
     Indication: PRODUCT USED FOR UNKNOWN INDICATION
     Route: 045

REACTIONS (4)
  - Abdominal discomfort [Unknown]
  - Diarrhoea [Unknown]
  - Malaise [Unknown]
  - Unevaluable event [Unknown]

NARRATIVE: CASE EVENT DATE: 20160719
